FAERS Safety Report 15499366 (Version 1)
Quarter: 2018Q4

REPORT INFORMATION
  Report Type: Spontaneous
  Country: US (occurrence: US)
  Receive Date: 20181009
  Receipt Date: 20181009
  Transmission Date: 20190205
  Serious: No
  Sender: FDA-Public Use
  Company Number: None

PATIENT
  Age: 70 Year

DRUGS (2)
  1. ADCIRCA [Suspect]
     Active Substance: TADALAFIL
     Dates: start: 201802
  2. LETAIRIS [Concomitant]
     Active Substance: AMBRISENTAN
     Dates: start: 20171104

REACTIONS (2)
  - Product dose omission [None]
  - Malignant melanoma stage IV [None]

NARRATIVE: CASE EVENT DATE: 20181005
